FAERS Safety Report 5197502-X (Version None)
Quarter: 2007Q1

REPORT INFORMATION
  Report Type: 
  Country: None (occurrence: None)
  Receive Date: 20070103
  Receipt Date: 20061227
  Transmission Date: 20070707
  Serious: Yes (Hospitalization, Other)
  Sender: FDA-Public Use
  Company Number: US-SHR-US-2006-040810

PATIENT
  Age: 14 Year
  Sex: Female
  Weight: 44.4 kg

DRUGS (4)
  1. YASMIN [Suspect]
     Dosage: 1 TAB(S), 1X/DAY
     Dates: start: 20061105, end: 20061125
  2. ADOXA [Concomitant]
  3. ALLEGRA [Concomitant]
  4. ADVAIR DISKUS 100/50 [Concomitant]

REACTIONS (8)
  - CONVERSION DISORDER [None]
  - FATIGUE [None]
  - HEADACHE [None]
  - MALAISE [None]
  - MOTOR DYSFUNCTION [None]
  - MUSCLE TWITCHING [None]
  - MYALGIA [None]
  - PHARYNGOLARYNGEAL PAIN [None]
